FAERS Safety Report 4723486-1 (Version None)
Quarter: 2005Q3

REPORT INFORMATION
  Report Type: 
  Country: None (occurrence: None)
  Receive Date: 20050725
  Receipt Date: 20050718
  Transmission Date: 20060218
  Serious: Yes (Other)
  Sender: FDA-Public Use
  Company Number: IE-GLAXOSMITHKLINE-B0388435A

PATIENT
  Age: 38 Year
  Sex: Female

DRUGS (1)
  1. BECOTIDE [Suspect]
     Route: 055

REACTIONS (4)
  - ASTHMA [None]
  - DYSGEUSIA [None]
  - PHARMACEUTICAL PRODUCT COMPLAINT [None]
  - RETCHING [None]
